FAERS Safety Report 5607379-3 (Version None)
Quarter: 2008Q1

REPORT INFORMATION
  Report Type: 
  Country: None (occurrence: None)
  Receive Date: 20080125
  Receipt Date: 20080125
  Transmission Date: 20080703
  Serious: Yes (Hospitalization, Disabling)
  Sender: FDA-Public Use
  Company Number: None

PATIENT
  Age: 29 Year
  Sex: Female
  Weight: 63.5036 kg

DRUGS (1)
  1. MIRENA [Suspect]
     Indication: CONTRACEPTION
     Route: 015
     Dates: start: 20060301, end: 20080122

REACTIONS (3)
  - ACNE [None]
  - HIRSUTISM [None]
  - IUD MIGRATION [None]
